FAERS Safety Report 5245407-8 (Version None)
Quarter: 2007Q1

REPORT INFORMATION
  Report Type: 
  Country: None (occurrence: None)
  Receive Date: 20070223
  Receipt Date: 20070216
  Transmission Date: 20070707
  Serious: Yes (Hospitalization)
  Sender: FDA-Public Use
  Company Number: DK-SHR-DK-2007-004776

PATIENT
  Age: 37 Year
  Sex: Female
  Weight: 49 kg

DRUGS (2)
  1. LEVONORGESTREL [Suspect]
     Dosage: 20 A?G/DAY, CONT
     Route: 015
     Dates: start: 20020901, end: 20070208
  2. CIPRALEX                                /DEN/ [Concomitant]
     Dosage: 20 MG, 1 DOSE

REACTIONS (1)
  - VENOUS THROMBOSIS [None]
